FAERS Safety Report 5886928-4 (Version None)
Quarter: 2008Q3

REPORT INFORMATION
  Report Type: 
  Country: None (occurrence: None)
  Receive Date: 20080917
  Receipt Date: 20080904
  Transmission Date: 20090109
  Serious: Yes (Death)
  Sender: FDA-Public Use
  Company Number: US-ELI_LILLY_AND_COMPANY-CA200809001263

PATIENT
  Age: 29 Year
  Sex: Male

DRUGS (2)
  1. OLANZAPINE [Suspect]
  2. TRAZODONE HCL [Concomitant]

REACTIONS (2)
  - CHEMICAL POISONING [None]
  - COMPLETED SUICIDE [None]
